FAERS Safety Report 8173417-X (Version None)
Quarter: 2012Q1

REPORT INFORMATION
  Report Type: 
  Country: None (occurrence: None)
  Receive Date: 20120229
  Receipt Date: 20120228
  Transmission Date: 20120608
  Serious: Yes (Other)
  Sender: FDA-Public Use
  Company Number: CA-BAYER-2012-019477

PATIENT
  Sex: Female

DRUGS (6)
  1. CALCIUM [Concomitant]
  2. BETASERON [Suspect]
     Indication: RELAPSING-REMITTING MULTIPLE SCLEROSIS
     Dosage: UNK
     Dates: start: 20070821
  3. EFFEXOR [Concomitant]
  4. GABAPENTIN [Concomitant]
  5. VITAMIN D [Concomitant]
  6. CELEBREX [Concomitant]

REACTIONS (4)
  - INFECTION [None]
  - MASS [None]
  - CELLULITIS [None]
  - INJECTION SITE HAEMATOMA [None]
